FAERS Safety Report 8125324 (Version 7)
Quarter: 2012Q4

REPORT INFORMATION
  Report Type: 
  Country: US (occurrence: US)
  Receive Date: 20110908
  Receipt Date: 20120907
  Transmission Date: 20130627
  Serious: No
  Sender: FDA-Public Use
  Company Number: US-BIOGENIDEC-2011BI033030

PATIENT
  Age: 47 None
  Sex: Female

DRUGS (6)
  1. TYSABRI [Suspect]
     Indication: MULTIPLE SCLEROSIS
     Route: 042
     Dates: start: 20110822
  2. INTERFERONS (NOS) [Concomitant]
  3. BETASERON [Concomitant]
     Indication: MULTIPLE SCLEROSIS
  4. ZOMIG [Concomitant]
     Indication: CLUSTER HEADACHE
     Dates: start: 2004
  5. ZOMIG [Concomitant]
     Indication: HEADACHE
     Dates: start: 2004
  6. COPAXONE [Concomitant]
     Indication: MULTIPLE SCLEROSIS

REACTIONS (15)
  - Neck pain [Not Recovered/Not Resolved]
  - Gait disturbance [Not Recovered/Not Resolved]
  - Upper extremity mass [Not Recovered/Not Resolved]
  - Cluster headache [Recovered/Resolved]
  - Visual impairment [Recovered/Resolved]
  - Poor venous access [Recovered/Resolved]
  - Feeling cold [Not Recovered/Not Resolved]
  - Balance disorder [Not Recovered/Not Resolved]
  - Cognitive disorder [Not Recovered/Not Resolved]
  - Memory impairment [Not Recovered/Not Resolved]
  - Headache [Recovered/Resolved]
  - Fatigue [Not Recovered/Not Resolved]
  - Infusion site bruising [Recovered/Resolved]
  - Infusion site pain [Not Recovered/Not Resolved]
  - Malaise [Unknown]
